FAERS Safety Report 11658915 (Version 3)
Quarter: 2015Q4

REPORT INFORMATION
  Report Type: Spontaneous
  Country: ZA (occurrence: ZA)
  Receive Date: 20151026
  Receipt Date: 20151028
  Transmission Date: 20160304
  Serious: Yes (Hospitalization, Other)
  Sender: FDA-Public Use
  Company Number: PHHY2015ZA137574

PATIENT
  Age: 66 Year
  Sex: Female
  Weight: 32 kg

DRUGS (5)
  1. RIVOTRIL [Concomitant]
     Active Substance: CLONAZEPAM
     Indication: EPILEPSY
     Dosage: 1.5 DF (ONE AND A HALF TABLET), QD
     Route: 065
  2. RIDAQ-50 [Concomitant]
     Indication: DIURETIC THERAPY
     Route: 065
  3. CONCOR [Concomitant]
     Active Substance: BISOPROLOL FUMARATE
     Indication: HYPERTENSION
     Dosage: 0.5 DF (HALF TABLET), QD
     Route: 065
  4. TEGRETOL [Suspect]
     Active Substance: CARBAMAZEPINE
     Indication: EPILEPSY
     Dosage: UNK
     Route: 065
     Dates: start: 201101
  5. VECTORYL [Concomitant]
     Indication: ENZYME INHIBITION
     Dosage: 0.5 DF, BID (IN THE MORNING AND AT NIGHT)
     Route: 065

REACTIONS (7)
  - Fall [Unknown]
  - Feeling drunk [Unknown]
  - Blood pressure abnormal [Recovered/Resolved]
  - Upper limb fracture [Unknown]
  - Balance disorder [Unknown]
  - Dizziness [Unknown]
  - Feeling abnormal [Unknown]

NARRATIVE: CASE EVENT DATE: 20150505
